APPROVED DRUG PRODUCT: AZATHIOPRINE SODIUM
Active Ingredient: AZATHIOPRINE SODIUM
Strength: EQ 100MG BASE/VIAL
Dosage Form/Route: INJECTABLE;INJECTION
Application: A074419 | Product #001
Applicant: HIKMA PHARMACEUTICALS USA INC
Approved: Mar 31, 1995 | RLD: No | RS: Yes | Type: RX